FAERS Safety Report 7262576-9 (Version None)
Quarter: 2011Q1

REPORT INFORMATION
  Report Type: 
  Country: None (occurrence: None)
  Receive Date: 20110130
  Receipt Date: 20100911
  Transmission Date: 20110831
  Serious: No
  Sender: FDA-Public Use
  Company Number: US-ABBOTT-10P-163-0670456-00

PATIENT
  Age: 28 Year
  Sex: Female

DRUGS (4)
  1. PLAQUENIL [Concomitant]
     Indication: RHEUMATOID ARTHRITIS
     Dosage: DAILY
  2. MINACIN [Concomitant]
     Indication: RHEUMATOID ARTHRITIS
     Dosage: DAILY
  3. HUMIRA [Suspect]
     Indication: RHEUMATOID ARTHRITIS
     Dates: start: 20090801
  4. TRINESSA [Concomitant]
     Indication: CONTRACEPTION

REACTIONS (3)
  - DEVICE MALFUNCTION [None]
  - INJECTION SITE PAIN [None]
  - INCORRECT DOSE ADMINISTERED [None]
